FAERS Safety Report 10983343 (Version 1)
Quarter: 2015Q2

REPORT INFORMATION
  Report Type: Spontaneous
  Country: JP (occurrence: JP)
  Receive Date: 20150403
  Receipt Date: 20150403
  Transmission Date: 20150821
  Serious: Yes (Other)
  Sender: FDA-Public Use
  Company Number: PHJP2015JP004999

PATIENT
  Age: 49 Year
  Sex: Male

DRUGS (1)
  1. NEORAL [Suspect]
     Active Substance: CYCLOSPORINE
     Indication: BONE MARROW TRANSPLANT
     Dosage: 100 MG, BID
     Route: 048
     Dates: end: 20150202

REACTIONS (2)
  - Ileus [Unknown]
  - Oral administration complication [Unknown]

NARRATIVE: CASE EVENT DATE: 20150202
